FAERS Safety Report 18427829 (Version 2)
Quarter: 2020Q4

REPORT INFORMATION
  Report Type: Spontaneous
  Country: US (occurrence: US)
  Receive Date: 20201026
  Receipt Date: 20201123
  Transmission Date: 20210114
  Serious: Yes (Other)
  Sender: FDA-Public Use
  Company Number: US-GLAXOSMITHKLINE-US2020AMR209200

PATIENT

DRUGS (2)
  1. SUMATRIPTAN SUCCINATE. [Suspect]
     Active Substance: SUMATRIPTAN SUCCINATE
  2. SUMATRIPTAN SUCCINATE. [Suspect]
     Active Substance: SUMATRIPTAN SUCCINATE
     Indication: MIGRAINE WITH AURA
     Dosage: UNK
     Route: 065

REACTIONS (10)
  - Injury associated with device [Unknown]
  - Pain [Not Recovered/Not Resolved]
  - Product design issue [Unknown]
  - Screaming [Unknown]
  - Device use issue [Unknown]
  - Product complaint [Unknown]
  - Drug ineffective [Unknown]
  - Tunnel vision [Unknown]
  - Visual impairment [Unknown]
  - Disease recurrence [Unknown]
